FAERS Safety Report 4715094-3 (Version None)
Quarter: 2005Q2

REPORT INFORMATION
  Report Type: 
  Country: None (occurrence: None)
  Receive Date: 20050630
  Receipt Date: 20050316
  Transmission Date: 20051028
  Serious: Yes (Hospitalization)
  Sender: FDA-Public Use
  Company Number: 213172

PATIENT
  Age: 22 Year
  Sex: Male
  Weight: 56.7 kg

DRUGS (10)
  1. AVASTIN [Suspect]
     Indication: COLON CANCER
     Dosage: 290 MG, Q2W, INTRAVENOUS
     Route: 042
     Dates: start: 20041108
  2. CAMPTOSAR [Suspect]
     Indication: COLON CANCER
     Route: 065
     Dates: end: 20050228
  3. LEUCOVORIN CALCIUM [Concomitant]
  4. 5-FU (FLUOROURACIL) [Concomitant]
  5. OPIUM TINCTURE (OPIUM) [Concomitant]
  6. DILAUDID [Concomitant]
  7. ARANESP [Concomitant]
  8. NEUPOGEN [Concomitant]
  9. KYTRIL [Concomitant]
  10. PROTONIX [Concomitant]

REACTIONS (1)
  - INTESTINAL STOMA SITE BLEEDING [None]
